FAERS Safety Report 22208812 (Version 1)
Quarter: 2023Q2

REPORT INFORMATION
  Report Type: Spontaneous
  Country: US (occurrence: US)
  Receive Date: 20230413
  Receipt Date: 20230413
  Transmission Date: 20230721
  Serious: Yes (Other)
  Sender: FDA-Public Use
  Company Number: US-002147023-NVSC2023US084244

PATIENT
  Age: 69 Year
  Sex: Male

DRUGS (2)
  1. ACYCLOVIR [Suspect]
     Active Substance: ACYCLOVIR
     Indication: Product used for unknown indication
     Dosage: UNK
     Route: 065
  2. MANNITOL [Concomitant]
     Active Substance: MANNITOL
     Indication: Disturbance in attention
     Dosage: 0.5 MG/KG, Q6H
     Route: 065

REACTIONS (1)
  - Crystal nephropathy [Unknown]
